FAERS Safety Report 12435643 (Version 1)
Quarter: 2016Q2

REPORT INFORMATION
  Report Type: Spontaneous
  Country: US (occurrence: US)
  Receive Date: 20160603
  Receipt Date: 20160603
  Transmission Date: 20160815
  Serious: No
  Sender: FDA-Public Use
  Company Number: US-ROCHE-1291454

PATIENT
  Sex: Female

DRUGS (5)
  1. FISH OIL [Concomitant]
     Active Substance: FISH OIL
  2. MELATONIN [Concomitant]
     Active Substance: MELATONIN
  3. XELODA [Suspect]
     Active Substance: CAPECITABINE
     Indication: GASTROINTESTINAL CARCINOMA
     Route: 048
     Dates: start: 20130226
  4. XELODA [Suspect]
     Active Substance: CAPECITABINE
     Indication: SMALL INTESTINE CARCINOMA
     Dosage: 2 WEEKS ON, 1 WEEK OFF
     Route: 048
  5. ENZYMES [Concomitant]

REACTIONS (7)
  - Headache [Unknown]
  - Fatigue [Unknown]
  - Constipation [Unknown]
  - Palmar-plantar erythrodysaesthesia syndrome [Unknown]
  - Oral discomfort [Unknown]
  - Nausea [Unknown]
  - Dry skin [Unknown]
